FAERS Safety Report 6192790-5 (Version None)
Quarter: 2009Q2

REPORT INFORMATION
  Report Type: 
  Country: None (occurrence: None)
  Receive Date: 20090518
  Receipt Date: 20090513
  Transmission Date: 20091009
  Serious: Yes (Life-Threatening, Hospitalization)
  Sender: FDA-Public Use
  Company Number: CH-ASTRAZENECA-2009PK01298

PATIENT
  Age: 79 Year
  Sex: Male
  Weight: 68 kg

DRUGS (3)
  1. CASODEX [Suspect]
     Route: 048
     Dates: start: 20081022, end: 20081105
  2. ZOLADEX [Suspect]
     Route: 058
     Dates: start: 20081022
  3. PREDNISOLONE [Concomitant]
     Route: 048
     Dates: start: 20081017

REACTIONS (3)
  - DYSPNOEA [None]
  - INTERSTITIAL LUNG DISEASE [None]
  - PYREXIA [None]
